FAERS Safety Report 6433236-9 (Version None)
Quarter: 2009Q4

REPORT INFORMATION
  Report Type: 
  Country: None (occurrence: None)
  Receive Date: 20091109
  Receipt Date: 20091103
  Transmission Date: 20100525
  Serious: Yes (Death)
  Sender: FDA-Public Use
  Company Number: DE-WYE-G04783809

PATIENT
  Age: 20 Year
  Sex: Female

DRUGS (1)
  1. TAZOBAC EF [Suspect]
     Route: 042
     Dates: start: 20080101, end: 20081103

REACTIONS (1)
  - RENAL FAILURE [None]
